FAERS Safety Report 19243159 (Version 1)
Quarter: 2021Q2

REPORT INFORMATION
  Report Type: Report from Study
  Country: CA (occurrence: CA)
  Receive Date: 20210511
  Receipt Date: 20210511
  Transmission Date: 20210717
  Serious: Yes (Other)
  Sender: FDA-Public Use
  Company Number: CA-PFIZER INC-2021476493

PATIENT
  Age: 71 Year
  Sex: Male

DRUGS (21)
  1. CEFUROXIME. [Concomitant]
     Active Substance: CEFUROXIME
  2. PROLIA [Concomitant]
     Active Substance: DENOSUMAB
     Dosage: 1 EVERY 6 MONTHS (PRE?FILLED SYRINGE. PRESERVATIVE?FREE)
     Route: 065
  3. ZINC. [Concomitant]
     Active Substance: ZINC
  4. CURCUMIN [Concomitant]
     Active Substance: CURCUMIN
  5. HYPROMELLOSE [Concomitant]
     Active Substance: HYPROMELLOSES
     Route: 047
  6. NAPROXEN. [Concomitant]
     Active Substance: NAPROXEN
  7. RITUXIMAB. [Suspect]
     Active Substance: RITUXIMAB
     Indication: RHEUMATOID ARTHRITIS
     Dosage: 1000 MG 1 EVERY 15 DAYS
     Route: 042
  8. AMARYL [Concomitant]
     Active Substance: GLIMEPIRIDE
     Route: 045
  9. FENTANYL TRANSDERMAL SYSTEM [Concomitant]
     Active Substance: FENTANYL
     Route: 050
  10. PREDNISONE. [Concomitant]
     Active Substance: PREDNISONE
     Indication: NECK PAIN
     Route: 065
  11. VITAMIN B COMPLEX [Concomitant]
     Active Substance: CYANOCOBALAMIN\DEXPANTHENOL\NIACINAMIDE\PYRIDOXINE HYDROCHLORIDE\RIBOFLAVIN 5^-PHOSPHATE SODIUM\THIAMINE HYDROCHLORIDE\VITAMIN B COMPLEX
  12. ENBREL [Concomitant]
     Active Substance: ETANERCEPT
  13. PREDNISONE. [Concomitant]
     Active Substance: PREDNISONE
     Indication: ARTHRALGIA
  14. LYRICA [Concomitant]
     Active Substance: PREGABALIN
  15. METHYLPREDNISOLONE SODIUM SUCCINATE. [Concomitant]
     Active Substance: METHYLPREDNISOLONE SODIUM SUCCINATE
     Indication: PREMEDICATION
     Dosage: 100 MG
     Route: 042
  16. ARTHROTEC [Concomitant]
     Active Substance: DICLOFENAC SODIUM\MISOPROSTOL
  17. BENADRYL [Concomitant]
     Active Substance: DIPHENHYDRAMINE HYDROCHLORIDE
     Indication: PREMEDICATION
     Dosage: 50 MG
     Route: 048
  18. MAGNESIUM [Concomitant]
     Active Substance: MAGNESIUM
  19. TYLENOL [Concomitant]
     Active Substance: ACETAMINOPHEN
     Dosage: 650 MG
     Route: 048
  20. CALCIUM [Concomitant]
     Active Substance: CALCIUM
  21. PREDNISONE. [Concomitant]
     Active Substance: PREDNISONE
     Indication: HEADACHE

REACTIONS (12)
  - Headache [Not Recovered/Not Resolved]
  - Interstitial lung disease [Not Recovered/Not Resolved]
  - Rheumatoid arthritis [Not Recovered/Not Resolved]
  - Neck pain [Not Recovered/Not Resolved]
  - Osteoporosis [Not Recovered/Not Resolved]
  - Allergy to metals [Not Recovered/Not Resolved]
  - Arthralgia [Not Recovered/Not Resolved]
  - Drug hypersensitivity [Not Recovered/Not Resolved]
  - Eye irritation [Not Recovered/Not Resolved]
  - Oral candidiasis [Not Recovered/Not Resolved]
  - Oropharyngitis fungal [Not Recovered/Not Resolved]
  - Sensation of foreign body [Not Recovered/Not Resolved]
